FAERS Safety Report 5901068-3 (Version None)
Quarter: 2008Q3

REPORT INFORMATION
  Report Type: 
  Country: None (occurrence: None)
  Receive Date: 20080929
  Receipt Date: 20021115
  Transmission Date: 20090109
  Serious: Yes (Hospitalization)
  Sender: FDA-Public Use
  Company Number: US-BAYER-200226755BWH

PATIENT
  Age: 83 Year
  Sex: Male

DRUGS (4)
  1. AVELOX [Suspect]
     Indication: HAEMOTHORAX
     Route: 042
     Dates: start: 20020901, end: 20020907
  2. HALDOL [Concomitant]
     Route: 048
  3. COUMADIN [Concomitant]
     Route: 048
  4. RISPERDAL [Concomitant]
     Route: 065

REACTIONS (2)
  - AGITATION [None]
  - CONFUSIONAL STATE [None]
